FAERS Safety Report 4727352-7 (Version None)
Quarter: 2005Q3

REPORT INFORMATION
  Report Type: 
  Country: None (occurrence: None)
  Receive Date: 20050727
  Receipt Date: 20050727
  Transmission Date: 20060218
  Serious: Yes (Hospitalization)
  Sender: FDA-Public Use
  Company Number: None

PATIENT
  Age: 49 Year
  Sex: Male
  Weight: 126 kg

DRUGS (8)
  1. WARFARIN [Suspect]
     Indication: CARDIAC VALVE DISEASE
     Dosage: 10 MG PO DAILY
     Route: 048
  2. WARFARIN [Suspect]
     Indication: PROPHYLAXIS
     Dosage: 10 MG PO DAILY
     Route: 048
  3. LORATADINE [Concomitant]
  4. LOPRESSOR [Concomitant]
  5. SENOKOT [Concomitant]
  6. DILAUDID [Concomitant]
  7. ATIVAN [Concomitant]
  8. AMBIEN [Concomitant]

REACTIONS (5)
  - ANAEMIA [None]
  - FALL [None]
  - HAEMATOMA [None]
  - HAEMORRHAGE [None]
  - INTERNATIONAL NORMALISED RATIO INCREASED [None]
